FAERS Safety Report 18008045 (Version 1)
Quarter: 2020Q3

REPORT INFORMATION
  Report Type: Spontaneous
  Country: CH (occurrence: CH)
  Receive Date: 20200710
  Receipt Date: 20200710
  Transmission Date: 20201103
  Serious: Yes (Hospitalization)
  Sender: FDA-Public Use
  Company Number: CH-JNJFOC-20200707493

PATIENT
  Sex: Male
  Weight: 100 kg

DRUGS (4)
  1. ADEMPAS [Suspect]
     Active Substance: RIOCIGUAT
     Indication: PRODUCT USED FOR UNKNOWN INDICATION
     Dosage: 2.5 MG, UNK
     Route: 065
     Dates: start: 20200224
  2. XARELTO [Suspect]
     Active Substance: RIVAROXABAN
     Indication: PRODUCT USED FOR UNKNOWN INDICATION
     Dosage: 20 MG, UNK
     Route: 048
     Dates: end: 20200610
  3. CONCOR [Concomitant]
     Active Substance: BISOPROLOL FUMARATE
     Indication: SUPRAVENTRICULAR TACHYCARDIA
  4. AMLODIPIN PFIZER [Concomitant]
     Active Substance: AMLODIPINE BESYLATE

REACTIONS (3)
  - Upper gastrointestinal haemorrhage [Recovering/Resolving]
  - Blood loss anaemia [Recovering/Resolving]
  - Gastrooesophageal reflux disease [Recovering/Resolving]
